FAERS Safety Report 19275236 (Version 1)
Quarter: 2021Q2

REPORT INFORMATION
  Report Type: Other
  Country: US (occurrence: US)
  Receive Date: 20210519
  Receipt Date: 20210519
  Transmission Date: 20210717
  Serious: Yes (Death, Life-Threatening, Hospitalization)
  Sender: FDA-Public Use
  Company Number: US-ROCHE-2832338

PATIENT
  Age: 40 Year
  Sex: Female

DRUGS (9)
  1. ALTEPLASE. [Suspect]
     Active Substance: ALTEPLASE
     Indication: CORONARY ARTERY THROMBOSIS
     Dosage: 5 MG WAS ADMINISTERED INTO THE LAD VIA A GUIDE EXTENSION CATHETER
     Route: 013
  2. CLOPIDOGREL [Concomitant]
     Active Substance: CLOPIDOGREL BISULFATE
     Indication: PRODUCT USED FOR UNKNOWN INDICATION
     Route: 048
  3. HEPARIN SODIUM. [Concomitant]
     Active Substance: HEPARIN SODIUM
     Indication: PRODUCT USED FOR UNKNOWN INDICATION
  4. ALTEPLASE. [Suspect]
     Active Substance: ALTEPLASE
     Dosage: ADDITIONAL INTRACORONARY ALTEPLASE 5 MG WAS ADMINISTERED
     Route: 013
  5. EPTIFIBATIDE. [Concomitant]
     Active Substance: EPTIFIBATIDE
     Indication: PRODUCT USED FOR UNKNOWN INDICATION
     Route: 013
  6. NITROPRUSSIDE [Concomitant]
     Active Substance: NITROPRUSSIDE
     Indication: PRODUCT USED FOR UNKNOWN INDICATION
     Route: 013
  7. ASPIRIN. [Concomitant]
     Active Substance: ASPIRIN
     Indication: PRODUCT USED FOR UNKNOWN INDICATION
     Route: 048
  8. BIVALIRUDIN. [Concomitant]
     Active Substance: BIVALIRUDIN
     Indication: PRODUCT USED FOR UNKNOWN INDICATION
     Route: 042
  9. EPINEPHRINE. [Concomitant]
     Active Substance: EPINEPHRINE
     Indication: PRODUCT USED FOR UNKNOWN INDICATION
     Route: 013

REACTIONS (5)
  - Cardiogenic shock [Fatal]
  - Acute myocardial infarction [Unknown]
  - Hypoxia [Unknown]
  - Septic shock [Fatal]
  - Hypotension [Unknown]
